FAERS Safety Report 12263363 (Version 2)
Quarter: 2016Q2

REPORT INFORMATION
  Report Type: Spontaneous
  Country: JP (occurrence: JP)
  Receive Date: 20160413
  Receipt Date: 20160428
  Transmission Date: 20160815
  Serious: Yes (Other)
  Sender: FDA-Public Use
  Company Number: JP-PFIZER INC-2016206088

PATIENT
  Sex: Male

DRUGS (1)
  1. LYRICA [Suspect]
     Active Substance: PREGABALIN
     Indication: FLANK PAIN
     Dosage: 75 MG AN UNSPECIFIED DOSE INTERVAL
     Route: 048
     Dates: start: 201408

REACTIONS (8)
  - Pain [Unknown]
  - Syncope [Unknown]
  - Fall [Unknown]
  - Pain in extremity [Unknown]
  - Spinal compression fracture [Unknown]
  - Musculoskeletal pain [Unknown]
  - Disease recurrence [Unknown]
  - Headache [Unknown]

NARRATIVE: CASE EVENT DATE: 201411
